FAERS Safety Report 25126344 (Version 1)
Quarter: 2025Q1

REPORT INFORMATION
  Report Type: Report from Study
  Country: US (occurrence: US)
  Receive Date: 20250327
  Receipt Date: 20250327
  Transmission Date: 20250409
  Serious: Yes (Death)
  Sender: ABBVIE
  Company Number: US-ABBVIE-6197913

PATIENT
  Sex: Female

DRUGS (1)
  1. VENCLEXTA [Suspect]
     Active Substance: VENETOCLAX
     Indication: Myelofibrosis
     Dosage: UNIT DOSE: 100 MILLIGRAM,?FREQUENCY: 2 EVERY 1 DAY
     Route: 048
     Dates: start: 202406

REACTIONS (1)
  - Death [Fatal]
